FAERS Safety Report 4983461-9 (Version None)
Quarter: 2006Q2

REPORT INFORMATION
  Report Type: 
  Country: None (occurrence: None)
  Receive Date: 20060426
  Receipt Date: 20051115
  Transmission Date: 20061013
  Serious: Yes (Hospitalization, Other)
  Sender: FDA-Public Use
  Company Number: US-MERCK-0511USA03574

PATIENT
  Age: 82 Year
  Sex: Male

DRUGS (4)
  1. VIOXX [Suspect]
     Route: 048
     Dates: start: 20030201, end: 20040601
  2. VIOXX [Suspect]
     Route: 048
     Dates: start: 20040601, end: 20040801
  3. VIOXX [Suspect]
     Route: 048
     Dates: start: 20040807, end: 20040901
  4. VIOXX [Suspect]
     Route: 048
     Dates: start: 20040917

REACTIONS (11)
  - ANGINA PECTORIS [None]
  - CAROTID ARTERY STENOSIS [None]
  - CENTRAL PAIN SYNDROME [None]
  - CEREBROVASCULAR ACCIDENT [None]
  - CEREBROVASCULAR DISORDER [None]
  - CORONARY ARTERY DISEASE [None]
  - DRUG ERUPTION [None]
  - HYPERCHOLESTEROLAEMIA [None]
  - HYPERLIPIDAEMIA [None]
  - HYPERTENSION [None]
  - MYOCARDIAL INFARCTION [None]
